FAERS Safety Report 21272661 (Version 1)
Quarter: 2022Q3

REPORT INFORMATION
  Report Type: Spontaneous
  Country: NL (occurrence: NL)
  Receive Date: 20220830
  Receipt Date: 20220830
  Transmission Date: 20221027
  Serious: Yes (Other)
  Sender: FDA-Public Use
  Company Number: NL-LRB-00825213

PATIENT
  Sex: Female
  Weight: 57 kg

DRUGS (5)
  1. ROSUVASTATIN [Suspect]
     Active Substance: ROSUVASTATIN
     Indication: Hypercholesterolaemia
     Dosage: 1 DOSAGE FORM, DAILY
     Route: 065
     Dates: start: 20220715
  2. ESOMEPRAZOLE [Concomitant]
     Active Substance: ESOMEPRAZOLE
     Indication: Product used for unknown indication
     Dosage: UNK, MAAGSAP-RESISTANT CAPSULE, 20 MG (MILLIGRAM)
     Route: 065
  3. PRASUGREL TABLET  5MG / EFIENT TABLET FILMOMHULD  5MG [Concomitant]
     Indication: Product used for unknown indication
     Dosage: UNK, TABLET, 5 MG (MILLIGRAM)
     Route: 065
  4. ACETYLSALICYLZUUR TABLET  80MG / Brand name not specified [Concomitant]
     Indication: Product used for unknown indication
     Dosage: TABLET, 80 MG (MILLIGRAM)
     Route: 065
  5. ATORVASTATIN [Concomitant]
     Active Substance: ATORVASTATIN
     Indication: Product used for unknown indication
     Dosage: TABLET, 40 MG (MILLIGRAM)
     Route: 065

REACTIONS (1)
  - Angina pectoris [Not Recovered/Not Resolved]
